FAERS Safety Report 13368571 (Version 1)
Quarter: 2017Q1

REPORT INFORMATION
  Report Type: Spontaneous
  Country: US (occurrence: US)
  Receive Date: 20170324
  Receipt Date: 20170324
  Transmission Date: 20170429
  Serious: No
  Sender: FDA-Public Use
  Company Number: US-PFIZER INC-2017129943

PATIENT
  Sex: Male

DRUGS (1)
  1. EUCRISA [Suspect]
     Active Substance: CRISABOROLE
     Dosage: UNK (FOR 2 WEEKS)

REACTIONS (4)
  - Erythema [Unknown]
  - Dermatitis atopic [Unknown]
  - Burning sensation [Unknown]
  - Swelling face [Unknown]
